FAERS Safety Report 8027202-X (Version None)
Quarter: 2012Q1

REPORT INFORMATION
  Report Type: 
  Country: None (occurrence: None)
  Receive Date: 20120106
  Receipt Date: 20111229
  Transmission Date: 20120608
  Serious: Yes (Death)
  Sender: FDA-Public Use
  Company Number: JP-B.I. PHARMACEUTICALS,INC./RIDGEFIELD-2011-EU-01259GD

PATIENT
  Age: 20 Year
  Sex: Female

DRUGS (6)
  1. HEPARIN [Suspect]
     Indication: CEREBRAL VENOUS THROMBOSIS
  2. STEROIDS [Concomitant]
     Indication: ANTIPHOSPHOLIPID SYNDROME
     Dosage: PULSE THERAPY
  3. COLCHICINE [Concomitant]
     Indication: HYPERURICAEMIA
  4. GLYCEOL [Concomitant]
     Indication: CEREBRAL VENOUS THROMBOSIS
  5. ALLOPURINOL [Concomitant]
     Indication: HYPERURICAEMIA
  6. DABIGATRAN ETEXILATE [Suspect]
     Indication: CEREBRAL VENOUS THROMBOSIS
     Dosage: 220 MG

REACTIONS (3)
  - SUBARACHNOID HAEMORRHAGE [None]
  - BRAIN INJURY [None]
  - INTRAVENTRICULAR HAEMORRHAGE [None]
